FAERS Safety Report 22762902 (Version 5)
Quarter: 2023Q4

REPORT INFORMATION
  Report Type: Report from Study
  Country: MX (occurrence: MX)
  Receive Date: 20230728
  Receipt Date: 20231221
  Transmission Date: 20240109
  Serious: Yes (Other)
  Sender: FDA-Public Use
  Company Number: MX-002147023-NVSC2023MX042898

PATIENT
  Sex: Female
  Weight: 60 kg

DRUGS (5)
  1. IMATINIB [Suspect]
     Active Substance: IMATINIB
     Indication: Chronic myeloid leukaemia
     Dosage: UNK
     Route: 048
  2. IMATINIB [Suspect]
     Active Substance: IMATINIB
     Dosage: 2 DOSAGE FORM (EACH 100 MG)
     Route: 048
  3. IMATINIB [Suspect]
     Active Substance: IMATINIB
     Dosage: 4 DOSAGE FORM, QD
     Route: 048
  4. IMATINIB [Suspect]
     Active Substance: IMATINIB
     Dosage: UNK (100 (AS REPORTED), APR, 2 YEARS AGO)
     Route: 048
  5. LORAZEPAM [Concomitant]
     Active Substance: LORAZEPAM
     Indication: Insomnia
     Dosage: UNK (HALF TABLET)
     Route: 065

REACTIONS (42)
  - Thyroid cancer [Unknown]
  - Second primary malignancy [Unknown]
  - Thyroiditis [Unknown]
  - Diarrhoea [Unknown]
  - Acne [Unknown]
  - Thyroid mass [Unknown]
  - Thyroid disorder [Unknown]
  - Rhinitis allergic [Unknown]
  - Temperature intolerance [Unknown]
  - Malaise [Unknown]
  - Urinary tract infection [Unknown]
  - Blood urine present [Unknown]
  - Urinary tract pain [Unknown]
  - Nodule [Unknown]
  - Dysgeusia [Unknown]
  - Osteoarthritis [Unknown]
  - Chest pain [Unknown]
  - Lithiasis [Unknown]
  - Erythema [Unknown]
  - Hypersensitivity [Recovered/Resolved]
  - Pruritus [Unknown]
  - Fatigue [Unknown]
  - Decreased appetite [Unknown]
  - Constipation [Unknown]
  - Nausea [Unknown]
  - Dizziness [Unknown]
  - Vomiting [Unknown]
  - Memory impairment [Unknown]
  - Weight decreased [Unknown]
  - Dyspepsia [Unknown]
  - Influenza [Unknown]
  - Alopecia [Unknown]
  - Illness [Unknown]
  - Abdominal pain upper [Unknown]
  - Inflammation [Unknown]
  - Hunger [Unknown]
  - Depression [Unknown]
  - Reduced facial expression [Unknown]
  - Blood cholesterol increased [Unknown]
  - Blood triglycerides increased [Unknown]
  - Pain [Unknown]
  - Sitting disability [Unknown]
